FAERS Safety Report 16862897 (Version 10)
Quarter: 2021Q2

REPORT INFORMATION
  Report Type: Other
  Country: US (occurrence: US)
  Receive Date: 20190927
  Receipt Date: 20210629
  Transmission Date: 20210716
  Serious: Yes (Hospitalization, Other)
  Sender: FDA-Public Use
  Company Number: US-ROCHE-2382172

PATIENT
  Age: 44 Year
  Sex: Female
  Weight: 62.65 kg

DRUGS (31)
  1. ONDANSETRON [Concomitant]
     Active Substance: ONDANSETRON
     Indication: NAUSEA
     Route: 048
     Dates: start: 202001
  2. DIPHENHYDRAMINE. [Concomitant]
     Active Substance: DIPHENHYDRAMINE
     Dosage: 1 EVERY OTHER DAYS AS NEEDED,
     Route: 048
  3. MODAFINIL. [Concomitant]
     Active Substance: MODAFINIL
     Route: 048
  4. BOTOX [Concomitant]
     Active Substance: ONABOTULINUMTOXINA
  5. ACIDOPHILUS [Concomitant]
     Active Substance: LACTOBACILLUS ACIDOPHILUS
     Route: 048
  6. ZANTAC [Concomitant]
     Active Substance: RANITIDINE HYDROCHLORIDE
  7. BENADRYL [Concomitant]
     Active Substance: DIPHENHYDRAMINE HYDROCHLORIDE
  8. CLARITIN [Concomitant]
     Active Substance: LORATADINE
     Indication: HYPERSENSITIVITY
     Route: 048
  9. RITUXAN [Suspect]
     Active Substance: RITUXIMAB
     Indication: SECONDARY PROGRESSIVE MULTIPLE SCLEROSIS
     Dosage: HAD TWO DOSES LAST YEAR
     Route: 065
     Dates: start: 2018
  10. PROVIGIL [Concomitant]
     Active Substance: MODAFINIL
     Indication: FATIGUE
     Dosage: 2 TAB EVERY OTHER DAY AS NEEDED,
     Route: 048
  11. VITAMIN D3 [Concomitant]
     Active Substance: CHOLECALCIFEROL
     Route: 048
  12. ZALEPLON. [Concomitant]
     Active Substance: ZALEPLON
     Route: 048
  13. OCREVUS [Suspect]
     Active Substance: OCRELIZUMAB
     Indication: SECONDARY PROGRESSIVE MULTIPLE SCLEROSIS
     Dosage: SPLIT DOSE 300MG EVERY 14 DAYS FOR EVERY 6 MONTHS
     Route: 042
     Dates: start: 20190814
  14. OCREVUS [Suspect]
     Active Substance: OCRELIZUMAB
     Route: 042
     Dates: start: 20200820
  15. MIRTAZAPINE. [Concomitant]
     Active Substance: MIRTAZAPINE
     Dosage: AT NIGHT
  16. BUPROPION. [Concomitant]
     Active Substance: BUPROPION
     Indication: EX-TOBACCO USER
     Route: 048
     Dates: start: 2019
  17. FLUOXETINE HCL [Concomitant]
     Active Substance: FLUOXETINE HYDROCHLORIDE
  18. BACLOFEN. [Concomitant]
     Active Substance: BACLOFEN
     Route: 048
  19. AMANTADINE. [Concomitant]
     Active Substance: AMANTADINE HYDROCHLORIDE
     Indication: FATIGUE
     Dosage: 2 TAB EVERY OTHER DAY AS NEEDED,
     Route: 048
  20. FOLIC ACID. [Concomitant]
     Active Substance: FOLIC ACID
     Route: 048
     Dates: start: 201905
  21. ZOLPIDEM [Concomitant]
     Active Substance: ZOLPIDEM TARTRATE
  22. AMPYRA [Concomitant]
     Active Substance: DALFAMPRIDINE
     Dosage: AM AND PM
     Route: 048
     Dates: start: 20191106
  23. PANTOPRAZOLE [Concomitant]
     Active Substance: PANTOPRAZOLE
     Route: 048
     Dates: start: 20191106
  24. IBUPROFEN. [Concomitant]
     Active Substance: IBUPROFEN
     Dosage: AS NEEDED UP TO 2 TAB PER MONTH,
     Route: 048
  25. NAPROSYN [Concomitant]
     Active Substance: NAPROXEN
     Route: 048
  26. VITAMIN B12 [Concomitant]
     Active Substance: CYANOCOBALAMIN
     Route: 060
  27. OCREVUS [Suspect]
     Active Substance: OCRELIZUMAB
     Indication: RELAPSING-REMITTING MULTIPLE SCLEROSIS
     Dosage: 1ST HALF DOSE OF OCRELIZUMAB
     Route: 042
     Dates: start: 20190212, end: 20190226
  28. SODIUM CHLORIDE. [Concomitant]
     Active Substance: SODIUM CHLORIDE
  29. BACLOFEN. [Concomitant]
     Active Substance: BACLOFEN
     Indication: MUSCLE SPASMS
  30. SULFAMETOXAZOL [Concomitant]
     Active Substance: SULFAMETHOXAZOLE
     Dosage: HALF A TAB EVERY OTHER DAY,
     Route: 048
  31. ZOLPIDEM [Concomitant]
     Active Substance: ZOLPIDEM TARTRATE
     Dosage: 1 TABLET EVERY OTHER DAY
     Route: 048

REACTIONS (19)
  - Chest discomfort [Recovered/Resolved]
  - Medication error [Unknown]
  - Blood folate decreased [Unknown]
  - Herpes zoster [Recovered/Resolved]
  - Discomfort [Recovered/Resolved]
  - Dizziness [Recovered/Resolved]
  - Musculoskeletal disorder [Recovered/Resolved]
  - Dyspnoea [Recovered/Resolved]
  - Off label use [Unknown]
  - Breast cyst [Not Recovered/Not Resolved]
  - Dysstasia [Recovered/Resolved]
  - Multiple sclerosis [Recovered/Resolved]
  - Balance disorder [Recovered/Resolved]
  - Asthenia [Recovered/Resolved]
  - Sensory loss [Recovered/Resolved]
  - Headache [Recovered/Resolved]
  - Ovarian cyst [Not Recovered/Not Resolved]
  - Nausea [Recovered/Resolved]
  - Decreased appetite [Recovered/Resolved]

NARRATIVE: CASE EVENT DATE: 20190212
